FAERS Safety Report 6100447-1 (Version None)
Quarter: 2009Q1

REPORT INFORMATION
  Report Type: 
  Country: None (occurrence: None)
  Receive Date: 20090226
  Receipt Date: 20090218
  Transmission Date: 20090719
  Serious: Yes (Hospitalization, Other)
  Sender: FDA-Public Use
  Company Number: SPV1-2009-00259

PATIENT
  Age: 53 Year
  Sex: Female
  Weight: 68 kg

DRUGS (11)
  1. VYVANSE [Suspect]
     Indication: ATTENTION DEFICIT/HYPERACTIVITY DISORDER
     Dosage: 70 MG, 1X/DAY:QD, ORAL
     Route: 048
     Dates: start: 20070101, end: 20081101
  2. VYVANSE [Suspect]
     Indication: ATTENTION DEFICIT/HYPERACTIVITY DISORDER
     Dosage: 70 MG, 1X/DAY:QD, ORAL
     Route: 048
     Dates: start: 20090101
  3. ATENOLOL [Concomitant]
  4. TRICOR /00090101/ (ADENOSINE) [Concomitant]
  5. CRESTOR [Concomitant]
  6. LAMICTAL [Concomitant]
  7. AMBIEN [Concomitant]
  8. DEFULIN (CLOBETASOL PROPIONATE) [Concomitant]
  9. XANAX [Concomitant]
  10. CLIMARA [Concomitant]
  11. POTASSIUM (POTASSIUM) [Concomitant]

REACTIONS (5)
  - DISTURBANCE IN ATTENTION [None]
  - DRUG EFFECT DECREASED [None]
  - FATIGUE [None]
  - OFF LABEL USE [None]
  - SMEAR CERVIX ABNORMAL [None]
